FAERS Safety Report 9640096 (Version 1)
Quarter: 2013Q4

REPORT INFORMATION
  Report Type: Spontaneous
  Country: US (occurrence: None)
  Receive Date: 20131022
  Receipt Date: 20131022
  Transmission Date: 20140711
  Serious: Yes (Hospitalization)
  Sender: FDA-Public Use
  Company Number: None

PATIENT
  Age: 93 Year
  Sex: Male
  Weight: 84.8 kg

DRUGS (1)
  1. BUMETANIDE [Suspect]
     Indication: CARDIAC FAILURE CONGESTIVE
     Route: 048

REACTIONS (8)
  - Asthenia [None]
  - Dyspnoea [None]
  - Chest pain [None]
  - Hyperhidrosis [None]
  - Dysstasia [None]
  - Dysuria [None]
  - Sepsis [None]
  - Dehydration [None]
